FAERS Safety Report 7377511-2 (Version None)
Quarter: 2011Q1

REPORT INFORMATION
  Report Type: 
  Country: None (occurrence: None)
  Receive Date: 20110328
  Receipt Date: 20110321
  Transmission Date: 20110831
  Serious: No
  Sender: FDA-Public Use
  Company Number: US-PFIZER INC-2011032716

PATIENT
  Sex: Female
  Weight: 58.5 kg

DRUGS (4)
  1. MOTRIN [Suspect]
     Dosage: UNK
  2. MOTRIN [Suspect]
     Indication: BACK PAIN
     Dosage: UNK
     Route: 048
     Dates: end: 20110205
  3. ADVIL LIQUI-GELS [Suspect]
     Indication: BACK PAIN
     Dosage: 600 MG, DAILY
     Route: 048
     Dates: start: 20110206, end: 20110201
  4. LIPITOR [Concomitant]
     Dosage: 20 MG, DAILY

REACTIONS (6)
  - HEADACHE [None]
  - ERYTHEMA [None]
  - BLISTER [None]
  - EYE SWELLING [None]
  - PRURITUS [None]
  - INCORRECT DOSE ADMINISTERED [None]
